FAERS Safety Report 13996467 (Version 1)
Quarter: 2017Q3

REPORT INFORMATION
  Report Type: Spontaneous
  Country: US (occurrence: US)
  Receive Date: 20170921
  Receipt Date: 20170921
  Transmission Date: 20171128
  Serious: No
  Sender: FDA-Public Use
  Company Number: US-EMD SERONO-7127923

PATIENT
  Sex: Female
  Weight: 68 kg

DRUGS (1)
  1. REBIF [Suspect]
     Active Substance: INTERFERON BETA-1A
     Indication: PRODUCT USED FOR UNKNOWN INDICATION
     Route: 058
     Dates: start: 20020912

REACTIONS (4)
  - Injection site nodule [Unknown]
  - Insomnia [Not Recovered/Not Resolved]
  - Injection site bruising [Recovering/Resolving]
  - Injection site erythema [Recovering/Resolving]
